FAERS Safety Report 8264401-6 (Version None)
Quarter: 2012Q2

REPORT INFORMATION
  Report Type: 
  Country: None (occurrence: None)
  Receive Date: 20120406
  Receipt Date: 20120403
  Transmission Date: 20120825
  Serious: Yes (Death)
  Sender: FDA-Public Use
  Company Number: PHEH2012US003140

PATIENT
  Sex: Female

DRUGS (2)
  1. ZOMETA [Suspect]
     Dates: start: 20110804
  2. ZOMETA [Suspect]
     Dates: start: 20111012

REACTIONS (1)
  - DEATH [None]
